FAERS Safety Report 5748664-4 (Version None)
Quarter: 2008Q2

REPORT INFORMATION
  Report Type: 
  Country: None (occurrence: None)
  Receive Date: 20080521
  Receipt Date: 20080512
  Transmission Date: 20081010
  Serious: Yes (Other)
  Sender: FDA-Public Use
  Company Number: 2008040032

PATIENT
  Age: 43 Year
  Sex: Female
  Weight: 64.4108 kg

DRUGS (2)
  1. ASTELIN [Suspect]
     Indication: RHINITIS ALLERGIC
     Dosage: 1096 MCG (548 MCG,2 IN 1 D), IN
     Route: 055
     Dates: start: 20080410, end: 20080410
  2. CRESTOR [Concomitant]

REACTIONS (7)
  - COUGH [None]
  - DIZZINESS [None]
  - DYSPNOEA [None]
  - HEAD INJURY [None]
  - HYPERSENSITIVITY [None]
  - LOSS OF CONSCIOUSNESS [None]
  - MALAISE [None]
